FAERS Safety Report 19841890 (Version 1)
Quarter: 2021Q3

REPORT INFORMATION
  Report Type: Spontaneous
  Country: US (occurrence: US)
  Receive Date: 20210916
  Receipt Date: 20210916
  Transmission Date: 20211014
  Serious: No
  Sender: FDA-Public Use
  Company Number: US-ORGANON-O2109USA000777

PATIENT
  Sex: Female

DRUGS (10)
  1. FOLLISTIM AQ [Suspect]
     Active Substance: FOLLITROPIN
  2. GANIRELIX ACETATE INJECTION [Suspect]
     Active Substance: GANIRELIX ACETATE
     Dosage: UNK
  3. NORTREL [LEVONORGESTREL] [Suspect]
     Active Substance: LEVONORGESTREL
     Dosage: UNK
  4. AZITHROMYCIN ANHYDROUS. [Concomitant]
     Active Substance: AZITHROMYCIN ANHYDROUS
     Dosage: UNK
  5. LETROZOLE. [Concomitant]
     Active Substance: LETROZOLE
     Dosage: UNK
  6. VITAMIN D [VITAMIN D NOS] [Concomitant]
     Active Substance: VITAMIN D NOS
     Dosage: UNK
  7. PRENATAL [ASCORBIC ACID;FERROUS FUMARATE;FOLIC ACID;RETINOL] [Concomitant]
     Dosage: UNK
  8. FOLLISTIM AQ [Suspect]
     Active Substance: FOLLITROPIN
     Indication: INFERTILITY FEMALE
     Dosage: 150 UNITS, QD UD, STRENGTH REPORTED AS 900 INTERNATIONAL UNITS/1.08MILLI LITRE
     Route: 058
     Dates: start: 20200903
  9. LEUPROLIDE [LEUPRORELIN ACETATE] [Suspect]
     Active Substance: LEUPROLIDE ACETATE
     Dosage: UNK
  10. NOVAREL [Concomitant]
     Active Substance: CHORIOGONADOTROPIN ALFA
     Dosage: UNK

REACTIONS (1)
  - Abdominal distension [Unknown]
